FAERS Safety Report 7463852-7 (Version None)
Quarter: 2011Q2

REPORT INFORMATION
  Report Type: 
  Country: None (occurrence: None)
  Receive Date: 20110506
  Receipt Date: 20110504
  Transmission Date: 20111010
  Serious: Yes (Death)
  Sender: FDA-Public Use
  Company Number: CO-B.I. PHARMACEUTICALS,INC./RIDGEFIELD-2011-RA-00074RA

PATIENT
  Sex: Female
  Weight: 32 kg

DRUGS (6)
  1. PRADAXA [Suspect]
     Indication: ATRIAL FIBRILLATION
     Dosage: 220 MG
     Route: 048
     Dates: start: 20110221, end: 20110228
  2. VALPROIC ACID [Concomitant]
     Indication: CONVULSION
     Dosage: 750 MG
     Route: 048
     Dates: start: 20110224
  3. ASPIRIN [Concomitant]
     Indication: MYOCARDIAL INFARCTION
     Dosage: 100 MG
     Route: 048
     Dates: start: 20030501, end: 20110228
  4. RANITIDINE [Concomitant]
     Indication: PROPHYLAXIS AGAINST GASTROINTESTINAL ULCER
     Dosage: 150 MG
     Route: 042
     Dates: start: 20110226
  5. MONTELUKAST [Concomitant]
     Indication: ASTHMA
     Dosage: 10 MG
     Route: 048
     Dates: start: 20090101
  6. CLOPIDOGREL [Concomitant]
     Indication: MYOCARDIAL INFARCTION
     Dosage: 75 MG
     Route: 048
     Dates: start: 20101224, end: 20110228

REACTIONS (1)
  - INTRA-ABDOMINAL HAEMORRHAGE [None]
